FAERS Safety Report 21581890 (Version 1)
Quarter: 2022Q4

REPORT INFORMATION
  Report Type: Report from Study
  Country: US (occurrence: US)
  Receive Date: 20221111
  Receipt Date: 20221111
  Transmission Date: 20230112
  Serious: No
  Sender: FDA-Public Use
  Company Number: US-ABBVIE-4139132

PATIENT
  Sex: Male

DRUGS (2)
  1. HUMIRA [Suspect]
     Active Substance: ADALIMUMAB
     Indication: Psoriasis
     Route: 058
  2. COVID-19 VACCINE NOS [Suspect]
     Active Substance: COVID-19 VACCINE NOS
     Indication: COVID-19 immunisation
     Dosage: 1 1 ONCE?BOOSTER
     Route: 030

REACTIONS (4)
  - Abdominal discomfort [Unknown]
  - Psoriasis [Recovering/Resolving]
  - Allergy to vaccine [Unknown]
  - Chondrocalcinosis [Recovering/Resolving]
